FAERS Safety Report 19032625 (Version 1)
Quarter: 2021Q1

REPORT INFORMATION
  Report Type: Report from Study
  Country: US (occurrence: US)
  Receive Date: 20210319
  Receipt Date: 20210319
  Transmission Date: 20210420
  Serious: Yes (Death, Hospitalization)
  Sender: FDA-Public Use
  Company Number: US-JNJFOC-A-US2019-186247

PATIENT
  Age: 76 Year
  Sex: Female
  Weight: 58.7 kg

DRUGS (13)
  1. UPTRAVI [Suspect]
     Active Substance: SELEXIPAG
     Indication: PULMONARY ARTERIAL HYPERTENSION
     Dosage: UNK
     Route: 048
     Dates: start: 20190110, end: 20190823
  2. FUROSEMIDE. [Concomitant]
     Active Substance: FUROSEMIDE
     Dosage: UNK
     Dates: start: 20170422
  3. OPSUMIT [Suspect]
     Active Substance: MACITENTAN
     Dosage: 10 MG, QD
     Route: 048
     Dates: start: 20150515
  4. TADALAFIL. [Concomitant]
     Active Substance: TADALAFIL
  5. LOVASTATIN. [Concomitant]
     Active Substance: LOVASTATIN
     Dosage: UNK
     Dates: start: 20120824
  6. REMODULIN [Concomitant]
     Active Substance: TREPROSTINIL
     Dosage: 92 NG/KG, PER MIN
     Route: 042
     Dates: start: 201908
  7. METFORMIN [Concomitant]
     Active Substance: METFORMIN HYDROCHLORIDE
     Dosage: UNK
     Dates: start: 20170307
  8. OXYGEN. [Concomitant]
     Active Substance: OXYGEN
  9. WARFARIN [Concomitant]
     Active Substance: WARFARIN
  10. OPSUMIT [Suspect]
     Active Substance: MACITENTAN
     Indication: PULMONARY ARTERIAL HYPERTENSION
     Dosage: 10 MG, QD
     Route: 048
     Dates: start: 20150515, end: 20191104
  11. COUMADIN [Concomitant]
     Active Substance: WARFARIN SODIUM
     Dosage: UNK
     Dates: start: 20170422
  12. METFORMIN [Concomitant]
     Active Substance: METFORMIN HYDROCHLORIDE
  13. POTASSIUM CHLORIDE. [Concomitant]
     Active Substance: POTASSIUM CHLORIDE
     Dosage: UNK
     Dates: start: 20170422

REACTIONS (24)
  - Pulmonary arterial hypertension [Unknown]
  - Dyspnoea exertional [Recovered/Resolved]
  - Therapy change [Unknown]
  - General physical health deterioration [Unknown]
  - Catheter site erosion [Unknown]
  - Back pain [Recovered/Resolved]
  - Vertebroplasty [Recovered/Resolved with Sequelae]
  - Dyspnoea [Recovered/Resolved]
  - Pulmonary arterial pressure increased [Unknown]
  - Headache [Recovered/Resolved]
  - Right ventricular failure [Recovered/Resolved]
  - Device related infection [Fatal]
  - Oxygen consumption increased [Recovered/Resolved]
  - Nausea [Unknown]
  - Arthralgia [Unknown]
  - Fatigue [Recovered/Resolved]
  - Condition aggravated [Unknown]
  - Device dislocation [Unknown]
  - Catheter site pain [Unknown]
  - N-terminal prohormone brain natriuretic peptide increased [Recovered/Resolved]
  - Spinal compression fracture [Recovered/Resolved]
  - Catheter site infection [Unknown]
  - Catheter management [Unknown]
  - Secretion discharge [Unknown]

NARRATIVE: CASE EVENT DATE: 20190412
